FAERS Safety Report 12565577 (Version 1)
Quarter: 2016Q3

REPORT INFORMATION
  Report Type: Spontaneous
  Country: US (occurrence: US)
  Receive Date: 20160718
  Receipt Date: 20160718
  Transmission Date: 20161109
  Serious: No
  Sender: FDA-Public Use
  Company Number: US-BAUSCH-BL-2016-003289

PATIENT
  Age: 86 Year
  Sex: Female

DRUGS (4)
  1. BESIVANCE [Suspect]
     Active Substance: BESIFLOXACIN
     Indication: DACRYOSTENOSIS ACQUIRED
     Route: 047
     Dates: start: 201602
  2. ERYTHROMYCIN OPHTHALMIC OINTMENT [Concomitant]
     Indication: EYE INFECTION
  3. BESIVANCE [Suspect]
     Active Substance: BESIFLOXACIN
     Indication: EYE INFECTION
  4. ERYTHROMYCIN OPHTHALMIC OINTMENT [Concomitant]
     Indication: DACRYOSTENOSIS ACQUIRED
     Route: 047
     Dates: start: 20160205

REACTIONS (1)
  - Vision blurred [Recovering/Resolving]

NARRATIVE: CASE EVENT DATE: 20160207
